FAERS Safety Report 18367777 (Version 3)
Quarter: 2020Q4

REPORT INFORMATION
  Report Type: Report from Study
  Country: AU (occurrence: AU)
  Receive Date: 20201009
  Receipt Date: 20201105
  Transmission Date: 20210114
  Serious: Yes (Hospitalization, Other)
  Sender: FDA-Public Use
  Company Number: AU-JNJFOC-20200102764

PATIENT
  Age: 82 Year
  Sex: Female

DRUGS (1)
  1. SIMPONI [Suspect]
     Active Substance: GOLIMUMAB
     Indication: RHEUMATOID ARTHRITIS
     Route: 058

REACTIONS (8)
  - Emphysema [Unknown]
  - Accidental exposure to product [Unknown]
  - Chronic obstructive pulmonary disease [Unknown]
  - Knee arthroplasty [Recovering/Resolving]
  - Staphylococcal infection [Recovered/Resolved]
  - Joint swelling [Recovering/Resolving]
  - Tremor [Unknown]
  - Product dose omission issue [Unknown]

NARRATIVE: CASE EVENT DATE: 20191231
